FAERS Safety Report 19139910 (Version 1)
Quarter: 2021Q2

REPORT INFORMATION
  Report Type: Spontaneous
  Country: US (occurrence: US)
  Receive Date: 20210415
  Receipt Date: 20210415
  Transmission Date: 20210717
  Serious: No
  Sender: FDA-Public Use
  Company Number: None

PATIENT
  Age: 75 Year
  Sex: Male
  Weight: 79.38 kg

DRUGS (1)
  1. ROSUVASTATIN CALCIUM 20MG TAB [Suspect]
     Active Substance: ROSUVASTATIN CALCIUM
     Indication: BLOOD CHOLESTEROL ABNORMAL
     Dosage: ?          OTHER STRENGTH:20MG, 40MG;QUANTITY:1 DF DOSAGE FORM;?
     Route: 048
     Dates: start: 20200116, end: 20210227

REACTIONS (5)
  - Pain [None]
  - Movement disorder [None]
  - Arthralgia [None]
  - Loss of personal independence in daily activities [None]
  - Near death experience [None]

NARRATIVE: CASE EVENT DATE: 20200127
